FAERS Safety Report 12274860 (Version 1)
Quarter: 2016Q2

REPORT INFORMATION
  Report Type: Spontaneous
  Country: None (occurrence: US)
  Receive Date: 20160415
  Receipt Date: 20160415
  Transmission Date: 20160815
  Serious: No
  Sender: FDA-Public Use
  Company Number: US-ALLERGAN-1612218US

PATIENT
  Sex: Female
  Weight: 65.76 kg

DRUGS (10)
  1. BIONECT [Concomitant]
     Active Substance: HYALURONIC ACID
     Indication: THERAPEUTIC SKIN CARE TOPICAL
     Route: 061
  2. FERRALET                           /00023502/ [Concomitant]
     Indication: ANAEMIA
  3. IVERMECTIN. [Concomitant]
     Active Substance: IVERMECTIN
     Indication: ROSACEA
     Route: 061
  4. LATISSE [Suspect]
     Active Substance: BIMATOPROST
     Indication: GROWTH OF EYELASHES
     Dosage: 2 GTT, QHS
     Route: 061
     Dates: start: 2012, end: 20151227
  5. PROGESTERONE. [Concomitant]
     Active Substance: PROGESTERONE
     Indication: MENOPAUSE
     Dosage: 100 MG, SINGLE
  6. SPIRONOLACTONE. [Concomitant]
     Active Substance: SPIRONOLACTONE
     Indication: ACNE
  7. NATURE-THROID [Concomitant]
     Active Substance: THYROID, PORCINE
     Indication: HYPOTHYROIDISM
     Dosage: 65 MG, UNK
  8. SPIRONOLACTONE. [Concomitant]
     Active Substance: SPIRONOLACTONE
     Indication: ROSACEA
     Dosage: 50 MG, UNK
  9. FINACEA [Concomitant]
     Active Substance: AZELAIC ACID
     Indication: ROSACEA
     Route: 061
  10. BIONECT [Concomitant]
     Active Substance: HYALURONIC ACID
     Indication: THERAPEUTIC SKIN CARE TOPICAL

REACTIONS (6)
  - Skin hyperpigmentation [Not Recovered/Not Resolved]
  - Inappropriate schedule of drug administration [Unknown]
  - Erythema of eyelid [Unknown]
  - Periorbital fat atrophy [Unknown]
  - Therapeutic response unexpected [Unknown]
  - Lid sulcus deepened [Unknown]
